FAERS Safety Report 19442073 (Version 2)
Quarter: 2021Q3

REPORT INFORMATION
  Report Type: Spontaneous
  Country: JP (occurrence: JP)
  Receive Date: 20210621
  Receipt Date: 20210702
  Transmission Date: 20211014
  Serious: Yes (Hospitalization, Other)
  Sender: FDA-Public Use
  Company Number: NVSJ2021JP009011

PATIENT
  Age: 65 Year
  Sex: Female

DRUGS (1)
  1. PAZOPANIB [Suspect]
     Active Substance: PAZOPANIB
     Indication: CLEAR CELL RENAL CELL CARCINOMA
     Dosage: 400 MG
     Route: 048

REACTIONS (9)
  - Interstitial lung disease [Unknown]
  - Disseminated intravascular coagulation [Unknown]
  - Hepatic function abnormal [Unknown]
  - Pyrexia [Unknown]
  - Platelet count decreased [Unknown]
  - Adrenal insufficiency [Unknown]
  - Dehydration [Unknown]
  - Concomitant disease aggravated [Unknown]
  - Chills [Unknown]
